FAERS Safety Report 9361550 (Version 10)
Quarter: 2015Q3

REPORT INFORMATION
  Report Type: Report from Study
  Country: US (occurrence: US)
  Receive Date: 20130621
  Receipt Date: 20150917
  Transmission Date: 20151125
  Serious: Yes (Hospitalization, Other)
  Sender: FDA-Public Use
  Company Number: US-SANOFI-AVENTIS-2013SA061226

PATIENT
  Age: 39 Year
  Sex: Female

DRUGS (5)
  1. NEURONTIN [Concomitant]
     Active Substance: GABAPENTIN
  2. AUBAGIO [Suspect]
     Active Substance: TERIFLUNOMIDE
     Indication: MULTIPLE SCLEROSIS
     Route: 048
     Dates: start: 20130517
  3. AUBAGIO [Suspect]
     Active Substance: TERIFLUNOMIDE
     Indication: MULTIPLE SCLEROSIS
     Dosage: 29-FEB-2013
     Route: 048
     Dates: start: 20130219, end: 20130516
  4. SOLU-MEDROL [Suspect]
     Active Substance: METHYLPREDNISOLONE SODIUM SUCCINATE
     Route: 065
  5. AUBAGIO [Suspect]
     Active Substance: TERIFLUNOMIDE
     Indication: MULTIPLE SCLEROSIS
     Route: 048

REACTIONS (24)
  - Dyspnoea [Unknown]
  - Pain [Unknown]
  - Alopecia [Recovering/Resolving]
  - Impaired driving ability [Unknown]
  - Drug dose omission [Unknown]
  - Peroneal nerve palsy [Unknown]
  - Fall [Unknown]
  - Vitamin B12 decreased [Recovering/Resolving]
  - Hypothyroidism [Recovering/Resolving]
  - Paraesthesia [Recovered/Resolved]
  - Hypoaesthesia [Recovering/Resolving]
  - Pulmonary thrombosis [Recovering/Resolving]
  - Vitamin D decreased [Recovering/Resolving]
  - Malaise [Unknown]
  - Asthenia [Recovering/Resolving]
  - Multiple sclerosis relapse [Recovered/Resolved]
  - Carpal tunnel syndrome [Unknown]
  - Peripheral swelling [Recovering/Resolving]
  - Thrombosis [Recovering/Resolving]
  - Pain in extremity [Unknown]
  - Movement disorder [Unknown]
  - Multiple sclerosis relapse [Unknown]
  - Fear of falling [Unknown]
  - Paraesthesia [Unknown]

NARRATIVE: CASE EVENT DATE: 201304
